FAERS Safety Report 5096995-6 (Version None)
Quarter: 2006Q3

REPORT INFORMATION
  Report Type: 
  Country: None (occurrence: None)
  Receive Date: 20060831
  Receipt Date: 20060831
  Transmission Date: 20061208
  Serious: Yes (Hospitalization)
  Sender: FDA-Public Use
  Company Number: None

PATIENT
  Age: 87 Year
  Sex: Male
  Weight: 69.8539 kg

DRUGS (7)
  1. IBUPROFEN [Suspect]
     Indication: PAIN
     Dosage: 600MG   BID-TID    PO
     Route: 048
  2. HYDROCODONE BITARTRATE [Concomitant]
  3. MICONAZOLE NITRATE [Concomitant]
  4. PROMETHAZINE [Concomitant]
  5. TERAZOSIN [Concomitant]
  6. VENLAFAXINE HCL [Concomitant]
  7. LOMOTIL [Concomitant]

REACTIONS (4)
  - ABDOMINAL PAIN UPPER [None]
  - DECREASED APPETITE [None]
  - RENAL FAILURE ACUTE [None]
  - WEIGHT DECREASED [None]
